FAERS Safety Report 8159310-7 (Version None)
Quarter: 2012Q1

REPORT INFORMATION
  Report Type: 
  Country: None (occurrence: None)
  Receive Date: 20120223
  Receipt Date: 20120216
  Transmission Date: 20120608
  Serious: Yes (Other)
  Sender: FDA-Public Use
  Company Number: US-PFIZER INC-2012042823

PATIENT
  Sex: Female
  Weight: 92.517 kg

DRUGS (6)
  1. GEODON [Suspect]
     Indication: BIPOLAR DISORDER
     Dosage: 60MG TWO CAPSULES DAILY
     Dates: start: 20101101
  2. CLONAZEPAM [Concomitant]
     Indication: BIPOLAR DISORDER
     Dosage: 3MG DAILY
  3. OXCARBAZEPINE [Concomitant]
     Indication: BIPOLAR DISORDER
     Dosage: 1200MG DAILY
  4. TRAZODONE HCL [Concomitant]
     Indication: BIPOLAR DISORDER
     Dosage: 200MG DAILY
  5. LITHIUM [Concomitant]
     Indication: BIPOLAR DISORDER
     Dosage: 900MG DAILY
  6. VITAMIN D [Concomitant]
     Dosage: UNK, MONTHLY

REACTIONS (2)
  - SUICIDAL IDEATION [None]
  - PARKINSON'S DISEASE [None]
